FAERS Safety Report 8628167 (Version 2)
Quarter: 2012Q4

REPORT INFORMATION
  Report Type: 
  Country: GB (occurrence: GB)
  Receive Date: 20120621
  Receipt Date: 20120924
  Transmission Date: 20130627
  Serious: Yes (Life-Threatening)
  Sender: FDA-Public Use
  Company Number: GB-TEVA-342521ISR

PATIENT
  Age: 94 Year
  Sex: Male

DRUGS (5)
  1. NITROFURANTOIN [Suspect]
     Dates: start: 20111228, end: 20111229
  2. OMEPRAZOL [Concomitant]
     Dosage: 20 Milligram Daily;
  3. MOVICOL [Concomitant]
     Dosage: 1 Dosage forms Daily; 1 sachet.
  4. ADIPINE XL 60MG [Concomitant]
     Dosage: 60 Milligram Daily;
  5. TRIMETHOPRIM [Concomitant]
     Dosage: 200 Milligram Daily; At night

REACTIONS (1)
  - Renal failure acute [Recovering/Resolving]
